FAERS Safety Report 24282340 (Version 3)
Quarter: 2024Q4

REPORT INFORMATION
  Report Type: Spontaneous
  Country: US (occurrence: US)
  Receive Date: 20240904
  Receipt Date: 20241007
  Transmission Date: 20250114
  Serious: Yes (Other)
  Sender: APELLIS PHARMACEUTICALS
  Company Number: US-APELLIS-2024-APL-0000871

PATIENT
  Weight: 78.1 kg

DRUGS (3)
  1. SYFOVRE [Suspect]
     Active Substance: PEGCETACOPLAN
     Indication: Dry age-related macular degeneration
     Dosage: FIRST DOSE FOR LEFT EYE, 2 INJECTIONS LEFT
     Route: 031
     Dates: start: 20240717
  2. SYFOVRE [Suspect]
     Active Substance: PEGCETACOPLAN
     Dosage: SYFOVRE ON BOTH EYES, (FIRST DOSE FOR THE RIGHT EYE), 1 INJECTION RIGHT
     Route: 031
     Dates: start: 20240814
  3. EYLEA [Suspect]
     Active Substance: AFLIBERCEPT
     Indication: Neovascular age-related macular degeneration
     Dosage: HAVE BEEN RECEIVING SINCE 2010

REACTIONS (3)
  - Uveitis [Recovering/Resolving]
  - Non-infectious endophthalmitis [Recovering/Resolving]
  - Vitritis [Recovering/Resolving]
